FAERS Safety Report 4943087-X (Version None)
Quarter: 2006Q1

REPORT INFORMATION
  Report Type: 
  Country: None (occurrence: None)
  Receive Date: 20060309
  Receipt Date: 20060303
  Transmission Date: 20060701
  Serious: Yes (Other)
  Sender: FDA-Public Use
  Company Number: 200610439GDS

PATIENT
  Age: 50 Year
  Sex: Female

DRUGS (6)
  1. PROFLOX (MOXIFLOXACIN) [Suspect]
     Indication: CHRONIC OBSTRUCTIVE PULMONARY DISEASE
     Dosage: 400 MG, QD, ORAL
     Route: 048
     Dates: start: 20060116, end: 20060125
  2. PROFLOX (MOXIFLOXACIN) [Suspect]
     Indication: CONDITION AGGRAVATED
     Dosage: 400 MG, QD, ORAL
     Route: 048
     Dates: start: 20060116, end: 20060125
  3. ACETYLCYSTEINE [Concomitant]
  4. DAFALGAN [Concomitant]
  5. SOTALOL HCL [Concomitant]
  6. SERETIDE MITE [Concomitant]

REACTIONS (2)
  - FOREIGN TRAVEL [None]
  - HEPATITIS E [None]
